FAERS Safety Report 19918925 (Version 2)
Quarter: 2021Q4

REPORT INFORMATION
  Report Type: Spontaneous
  Country: US (occurrence: US)
  Receive Date: 20211005
  Receipt Date: 20211012
  Transmission Date: 20220304
  Serious: No
  Sender: FDA-Public Use
  Company Number: US-TEVA-2021-US-1960132

PATIENT
  Sex: Male

DRUGS (2)
  1. LIDOCAINE [Suspect]
     Active Substance: LIDOCAINE
     Indication: Peripheral sensory neuropathy
     Route: 062
     Dates: start: 202006
  2. LIDOCAINE [Suspect]
     Active Substance: LIDOCAINE
     Route: 062
     Dates: start: 2021

REACTIONS (3)
  - Therapeutic product effect incomplete [Unknown]
  - Product adhesion issue [Unknown]
  - Product use in unapproved indication [Unknown]

NARRATIVE: CASE EVENT DATE: 20210101
